FAERS Safety Report 5098592-5 (Version None)
Quarter: 2006Q3

REPORT INFORMATION
  Report Type: 
  Country: None (occurrence: None)
  Receive Date: 20060906
  Receipt Date: 20060309
  Transmission Date: 20061208
  Serious: No
  Sender: FDA-Public Use
  Company Number: US-GLAXOSMITHKLINE-A0596951A

PATIENT
  Age: 76 Year
  Sex: Male

DRUGS (17)
  1. REQUIP [Suspect]
     Indication: RESTLESS LEGS SYNDROME
     Dosage: 1MG PER DAY
     Route: 048
     Dates: start: 20060228, end: 20060307
  2. DIOVAN [Concomitant]
  3. SPIRONOLACTONE [Concomitant]
  4. FUROSEMIDE [Concomitant]
  5. WARFARIN SODIUM [Concomitant]
  6. LIPITOR [Concomitant]
  7. FERROUS SULFATE TAB [Concomitant]
  8. AMARYL [Concomitant]
  9. NPH INSULIN [Concomitant]
  10. ATENOLOL [Concomitant]
  11. AMIODARONE [Concomitant]
  12. DOXAZOSIN MESYLATE [Concomitant]
  13. LANOXIN [Concomitant]
  14. STOOL SOFTENER [Concomitant]
  15. VITAMIN B COMPLEX CAP [Concomitant]
  16. VITAMIN E [Concomitant]
  17. ASPIRIN [Concomitant]

REACTIONS (1)
  - PROTHROMBIN TIME PROLONGED [None]
